FAERS Safety Report 10232688 (Version 2)
Quarter: 2014Q2

REPORT INFORMATION
  Report Type: Spontaneous
  Country: JP (occurrence: JP)
  Receive Date: 20140612
  Receipt Date: 20140618
  Transmission Date: 20141212
  Serious: Yes (Other)
  Sender: FDA-Public Use
  Company Number: PHHY2014JP069549

PATIENT
  Age: 72 Year
  Sex: Male
  Weight: 56 kg

DRUGS (5)
  1. SANDOSTATIN LAR [Suspect]
     Indication: ACROMEGALY
     Dosage: 20 MG, PER MONTH
     Route: 030
  2. SANDOSTATIN LAR [Suspect]
     Dosage: 50 MG, PER 14 DAYS
     Route: 058
  3. LISPRO INSULIN [Concomitant]
     Indication: DIABETES MELLITUS
     Dosage: 16 U, (6 U MORNING, 4 U NOON, 6 U EVENING)
  4. METFORMIN HYDROCHLORIDE [Concomitant]
     Indication: DIABETES MELLITUS
     Dosage: 250 MG, BID
     Route: 048
  5. VOGLIBOSE [Concomitant]
     Indication: DIABETES MELLITUS
     Dosage: 0.3 MG, TID
     Route: 048

REACTIONS (2)
  - Metastases to lymph nodes [Unknown]
  - Blood insulin decreased [Unknown]
